FAERS Safety Report 25017241 (Version 1)
Quarter: 2025Q1

REPORT INFORMATION
  Report Type: Spontaneous
  Country: US (occurrence: None)
  Receive Date: 20250226
  Receipt Date: 20250226
  Transmission Date: 20250409
  Serious: No
  Sender: FDA-CTU
  Company Number: None

PATIENT
  Age: 58 Year
  Sex: Female

DRUGS (1)
  1. AMBRISENTAN [Suspect]
     Active Substance: AMBRISENTAN
     Indication: Pulmonary arterial hypertension
     Dosage: FREQUENCY : DAILY;?
     Dates: start: 20250204, end: 20250226

REACTIONS (2)
  - Fluid retention [None]
  - Swelling [None]

NARRATIVE: CASE EVENT DATE: 20250211
